FAERS Safety Report 9426497 (Version 1)
Quarter: 2013Q3

REPORT INFORMATION
  Report Type: Spontaneous
  Country: US (occurrence: US)
  Receive Date: 20130730
  Receipt Date: 20130730
  Transmission Date: 20140515
  Serious: No
  Sender: FDA-Public Use
  Company Number: US-JNJFOC-20130710501

PATIENT
  Age: 53 Year
  Sex: Male
  Weight: 86.18 kg

DRUGS (3)
  1. SANDOZ FENTANYL TRANSDERMAL SYSTEM [Suspect]
     Indication: ROTATOR CUFF SYNDROME
     Route: 062
     Dates: start: 20130705
  2. SANDOZ FENTANYL TRANSDERMAL SYSTEM [Suspect]
     Indication: OSTEOARTHRITIS
     Route: 062
     Dates: start: 20130705
  3. SANDOZ FENTANYL TRANSDERMAL SYSTEM [Suspect]
     Indication: GOUT
     Route: 062
     Dates: start: 20130705

REACTIONS (5)
  - Inappropriate schedule of drug administration [Not Recovered/Not Resolved]
  - Hot flush [Not Recovered/Not Resolved]
  - Feeling abnormal [Recovered/Resolved]
  - Off label use [Unknown]
  - Nausea [Not Recovered/Not Resolved]
